FAERS Safety Report 23145240 (Version 1)
Quarter: 2023Q4

REPORT INFORMATION
  Report Type: Spontaneous
  Country: US (occurrence: None)
  Receive Date: 20231103
  Receipt Date: 20231103
  Transmission Date: 20240109
  Serious: Yes (Death)
  Sender: FDA-Public Use
  Company Number: None

PATIENT
  Age: 84 Year
  Sex: Male

DRUGS (14)
  1. RINVOQ [Suspect]
     Active Substance: UPADACITINIB
     Indication: Rheumatoid arthritis
     Dates: start: 20220408, end: 20231017
  2. PREDNISONE [Concomitant]
     Active Substance: PREDNISONE
  3. HYDROCHLOROTHIAZIDE [Concomitant]
     Active Substance: HYDROCHLOROTHIAZIDE
  4. VITAMIN D3 [Concomitant]
     Active Substance: CHOLECALCIFEROL
  5. aspirin [Concomitant]
  6. CYMBALTA [Concomitant]
     Active Substance: DULOXETINE HYDROCHLORIDE
  7. TAMSULOSIN [Concomitant]
  8. GINKGO [Concomitant]
     Active Substance: GINKGO
  9. LOSARTAN [Concomitant]
  10. lutein [Concomitant]
  11. NAPROXEN [Concomitant]
  12. METHOTREXATE [Concomitant]
     Active Substance: METHOTREXATE
  13. FOLIC ACID [Concomitant]
     Active Substance: FOLIC ACID
  14. AMLODIPINE [Concomitant]
     Active Substance: AMLODIPINE BESYLATE

REACTIONS (1)
  - Sudden death [None]

NARRATIVE: CASE EVENT DATE: 20231017
